FAERS Safety Report 22356696 (Version 5)
Quarter: 2025Q1

REPORT INFORMATION
  Report Type: Report from Study
  Country: US (occurrence: US)
  Receive Date: 20230523
  Receipt Date: 20250130
  Transmission Date: 20250408
  Serious: Yes (Other)
  Sender: NOVARTIS
  Company Number: US-002147023-NVSC2023US118041

PATIENT
  Age: 18 Year
  Sex: Male
  Weight: 87.09 kg

DRUGS (3)
  1. ILARIS [Suspect]
     Active Substance: CANAKINUMAB
     Indication: Pyrexia
     Route: 058
     Dates: start: 20190109
  2. ILARIS [Suspect]
     Active Substance: CANAKINUMAB
     Route: 058
     Dates: start: 20190111
  3. ILARIS [Suspect]
     Active Substance: CANAKINUMAB
     Route: 058
     Dates: end: 202310

REACTIONS (13)
  - Pneumonia mycoplasmal [Recovered/Resolved]
  - Pyrexia [Recovered/Resolved]
  - Cough [Recovered/Resolved]
  - Dyspnoea [Recovered/Resolved]
  - Arthralgia [Unknown]
  - Inflammation [Unknown]
  - Gait disturbance [Unknown]
  - Pain [Unknown]
  - Gastroenteritis viral [Recovered/Resolved]
  - Illness [Unknown]
  - Cough [Unknown]
  - Sneezing [Unknown]
  - Nasal congestion [Unknown]

NARRATIVE: CASE EVENT DATE: 20241124
